FAERS Safety Report 11112383 (Version 2)
Quarter: 2015Q3

REPORT INFORMATION
  Report Type: Spontaneous
  Country: SE (occurrence: SE)
  Receive Date: 20150514
  Receipt Date: 20150818
  Transmission Date: 20151125
  Serious: Yes (Other)
  Sender: FDA-Public Use
  Company Number: SE-BIOGENIDEC-2015BI059114

PATIENT
  Age: 39 Year
  Sex: Male

DRUGS (7)
  1. OMEPRAZOL [Concomitant]
     Active Substance: OMEPRAZOLE
  2. TYSABRI [Suspect]
     Active Substance: NATALIZUMAB
     Indication: MULTIPLE SCLEROSIS
     Route: 042
     Dates: start: 20131115, end: 20150429
  3. ATARAX [Concomitant]
     Active Substance: HYDROXYZINE\HYDROXYZINE HYDROCHLORIDE
  4. SOBRIL [Concomitant]
     Active Substance: OXAZEPAM
  5. ALVEDON [Concomitant]
     Active Substance: ACETAMINOPHEN
  6. SAROTEN [Concomitant]
     Active Substance: AMITRIPTYLINE
  7. CILAXORAL [Concomitant]

REACTIONS (4)
  - Testicular embryonal carcinoma stage I [Unknown]
  - Testicular teratoma benign [Unknown]
  - Postoperative wound infection [Unknown]
  - Varicocele [Unknown]

NARRATIVE: CASE EVENT DATE: 20150416
